FAERS Safety Report 7950707-4 (Version None)
Quarter: 2011Q4

REPORT INFORMATION
  Report Type: 
  Country: None (occurrence: None)
  Receive Date: 20111201
  Receipt Date: 20111128
  Transmission Date: 20120403
  Serious: Yes (Death, Hospitalization)
  Sender: FDA-Public Use
  Company Number: DE-BRISTOL-MYERS SQUIBB COMPANY-15618895

PATIENT
  Age: 77 Year
  Sex: Male
  Weight: 72 kg

DRUGS (11)
  1. FLUOROURACIL [Concomitant]
     Indication: COLORECTAL CANCER METASTATIC
     Dosage: CON INF ON DAY1 AND 2,400MG/M2 OVER 22-24 HRS CON INF.(27DEC10 ALSO TAKEN AS 1200MG/M2) EVERY 2 WKS
     Route: 040
  2. RAMIPRIL PLUS [Concomitant]
     Indication: HYPERTENSION
     Dates: start: 20000115
  3. GRANISETRON [Concomitant]
     Indication: PREMEDICATION
     Dosage: GIVEN 0-30MIN
  4. PRAVASTATIN SODIUM [Concomitant]
     Indication: HYPERTENSION
     Dates: start: 20000115
  5. LEUCOVORIN CALCIUM [Concomitant]
     Indication: COLORECTAL CANCER METASTATIC
     Dates: start: 20101227
  6. CORTICOSTEROID [Concomitant]
     Indication: PREMEDICATION
     Route: 042
  7. ATROPINE [Concomitant]
     Indication: PREMEDICATION
     Dosage: GIVEN 0-30MIN
  8. IRINOTECAN HCL [Concomitant]
     Indication: COLORECTAL CANCER METASTATIC
     Dates: start: 20101227
  9. LEUCOVORIN CALCIUM [Concomitant]
     Indication: COLORECTAL CANCER METASTATIC
     Dates: start: 20101227
  10. ERBITUX [Suspect]
     Indication: COLORECTAL CANCER METASTATIC
     Dosage: 250MG/M2 ON 03JAN11-21FEB11(49 DAYS) RECENT INF:21FEB11
     Route: 042
     Dates: start: 20101227, end: 20110221
  11. DIGITOXIN TAB [Concomitant]
     Indication: CARDIAC DISORDER
     Dates: start: 20000115

REACTIONS (1)
  - MYOCARDIAL INFARCTION [None]
